FAERS Safety Report 12921082 (Version 2)
Quarter: 2016Q4

REPORT INFORMATION
  Report Type: Spontaneous
  Country: DE (occurrence: DE)
  Receive Date: 20161107
  Receipt Date: 20161117
  Transmission Date: 20170207
  Serious: Yes (Hospitalization)
  Sender: FDA-Public Use
  Company Number: DE-TEVA-708403GER

PATIENT
  Age: 62 Year
  Sex: Male

DRUGS (1)
  1. COPAXONE [Suspect]
     Active Substance: GLATIRAMER ACETATE
     Indication: MULTIPLE SCLEROSIS
     Dates: start: 20161010, end: 20161024

REACTIONS (7)
  - Chills [Unknown]
  - Vomiting [Unknown]
  - Hepatitis [Unknown]
  - Diarrhoea [Unknown]
  - Procalcitonin increased [Unknown]
  - Pyrexia [Unknown]
  - Leukopenia [Unknown]

NARRATIVE: CASE EVENT DATE: 201610
